FAERS Safety Report 23269208 (Version 2)
Quarter: 2024Q1

REPORT INFORMATION
  Report Type: Report from Study
  Country: US (occurrence: US)
  Receive Date: 20231207
  Receipt Date: 20240123
  Transmission Date: 20240409
  Serious: Yes (Other)
  Sender: FDA-Public Use
  Company Number: US-ABBVIE-5386930

PATIENT
  Age: 59 Year
  Sex: Male
  Weight: 100 kg

DRUGS (1)
  1. HUMIRA [Suspect]
     Active Substance: ADALIMUMAB
     Indication: Colitis ulcerative
     Dosage: FORM STRENGTH: 40MG CITRATE FREE
     Route: 058
     Dates: start: 2021

REACTIONS (4)
  - Pyoderma gangrenosum [Unknown]
  - Skin disorder [Not Recovered/Not Resolved]
  - Ulcer [Unknown]
  - Impaired healing [Unknown]

NARRATIVE: CASE EVENT DATE: 20220206
